FAERS Safety Report 6571251-5 (Version None)
Quarter: 2010Q1

REPORT INFORMATION
  Report Type: 
  Country: None (occurrence: None)
  Receive Date: 20100129
  Receipt Date: 20100120
  Transmission Date: 20100710
  Serious: Yes (Hospitalization)
  Sender: FDA-Public Use
  Company Number: 2010000289

PATIENT
  Sex: Male

DRUGS (1)
  1. ACTIQ [Suspect]
     Dosage: 3200 MCG (1600 MCG, 2 IN 1 D), BU; 3200 MCG (800 MCG, 4 IN 1 D), BU
     Route: 002

REACTIONS (2)
  - DRUG PRESCRIBING ERROR [None]
  - UNEVALUABLE EVENT [None]
